FAERS Safety Report 8288920-1 (Version None)
Quarter: 2012Q2

REPORT INFORMATION
  Report Type: 
  Country: None (occurrence: None)
  Receive Date: 20120412
  Receipt Date: 20120330
  Transmission Date: 20120825
  Serious: Yes (Death, Hospitalization, Other)
  Sender: FDA-Public Use
  Company Number: TCI2010A00883

PATIENT
  Age: 70 Year
  Sex: Female

DRUGS (9)
  1. LANSOPRAZOLE [Suspect]
     Indication: ULCER
     Dosage: 15 MG (15 MG, 1 IN 1 D)  PER ORAL
     Route: 048
     Dates: start: 20061220, end: 20100302
  2. RHEUMATREX [Concomitant]
  3. PREDNISOLONE [Concomitant]
  4. ALFAROL (ALFACALCIDOL) [Concomitant]
  5. ASPARA-CA (ASPARTATE CALCIUM) [Concomitant]
  6. FOSAMAX [Concomitant]
  7. ENBREL [Suspect]
     Indication: RHEUMATOID ARTHRITIS
     Dosage: 25 MG (25 MG,2 IN 1 WK)  SUBCUTANEOUS
     Route: 058
     Dates: start: 20090212, end: 20100302
  8. PROGRAF [Concomitant]
  9. LOXONIN (LOXOPROFEN SODIUM) [Concomitant]

REACTIONS (27)
  - DRUG INEFFECTIVE [None]
  - HYPOAESTHESIA [None]
  - DIZZINESS [None]
  - URINARY TRACT INFECTION [None]
  - DECREASED APPETITE [None]
  - HEARING IMPAIRED [None]
  - TINNITUS [None]
  - URINARY RETENTION [None]
  - COUGH [None]
  - DEMYELINATION [None]
  - VASCULITIS [None]
  - DISSEMINATED INTRAVASCULAR COAGULATION [None]
  - HYPERREFLEXIA [None]
  - PLATELET COUNT DECREASED [None]
  - SOMNOLENCE [None]
  - BLOOD PHOSPHORUS DECREASED [None]
  - RENAL IMPAIRMENT [None]
  - WHITE BLOOD CELL COUNT DECREASED [None]
  - BLOOD PRESSURE DECREASED [None]
  - GAIT DISTURBANCE [None]
  - MENINGITIS CRYPTOCOCCAL [None]
  - NUCLEAR MAGNETIC RESONANCE IMAGING ABNORMAL [None]
  - MALAISE [None]
  - ABNORMAL BEHAVIOUR [None]
  - BLOOD POTASSIUM DECREASED [None]
  - SPINAL OSTEOARTHRITIS [None]
  - MENINGITIS TUBERCULOUS [None]
